FAERS Safety Report 6169147-6 (Version None)
Quarter: 2009Q2

REPORT INFORMATION
  Report Type: 
  Country: None (occurrence: None)
  Receive Date: 20090427
  Receipt Date: 20090403
  Transmission Date: 20091009
  Serious: Yes (Disabling)
  Sender: FDA-Public Use
  Company Number: CO-PFIZER INC-2008054552

PATIENT
  Sex: Female

DRUGS (3)
  1. CHAMPIX [Suspect]
     Route: 048
     Dates: start: 20080409, end: 20080101
  2. ALL OTHER THERAPEUTIC PRODUCTS [Concomitant]
  3. LOVASTATIN [Concomitant]

REACTIONS (1)
  - OSTEOARTHRITIS [None]
